FAERS Safety Report 7692549-3 (Version None)
Quarter: 2011Q3

REPORT INFORMATION
  Report Type: 
  Country: None (occurrence: None)
  Receive Date: 20110819
  Receipt Date: 20110815
  Transmission Date: 20111222
  Serious: Yes (Hospitalization, Disabling, Other)
  Sender: FDA-Public Use
  Company Number: US-MERCK-1107USA03607

PATIENT
  Age: 50 Year
  Sex: Female

DRUGS (22)
  1. FOSAMAX [Suspect]
     Indication: OSTEOPENIA
     Route: 048
     Dates: start: 20060101
  2. PREDNISONE [Concomitant]
     Indication: SJOGREN'S SYNDROME
     Route: 065
     Dates: start: 19850101
  3. CALCIUM (UNSPECIFIED) [Concomitant]
     Route: 065
     Dates: start: 19840101
  4. VITAMIN E [Concomitant]
     Route: 065
     Dates: start: 20100101
  5. PREMARIN [Concomitant]
     Route: 065
     Dates: start: 19740101
  6. FOSAMAX PLUS D [Suspect]
     Indication: OSTEOPOROSIS
     Route: 048
     Dates: start: 20070716, end: 20100701
  7. COD LIVER OIL [Concomitant]
     Route: 065
     Dates: start: 20100101
  8. SELECTIVE ESTROGEN RECEPTOR MODULATOR (UNSPECIFIED) [Concomitant]
     Route: 065
     Dates: start: 20070516, end: 20070525
  9. FOSAMAX PLUS D [Suspect]
     Route: 048
     Dates: start: 19960101, end: 20050101
  10. PLAQUENIL [Concomitant]
     Indication: SYSTEMIC LUPUS ERYTHEMATOSUS
     Route: 065
     Dates: start: 19850101
  11. PLAQUENIL [Concomitant]
     Indication: SJOGREN'S SYNDROME
     Route: 065
     Dates: start: 19850101
  12. PROTONIX [Concomitant]
     Route: 065
     Dates: start: 20070516, end: 20070525
  13. DIDRONEL [Concomitant]
     Route: 065
     Dates: start: 19930101, end: 19951201
  14. FOSAMAX [Suspect]
     Route: 048
     Dates: start: 19951201, end: 19980501
  15. FOSAMAX [Suspect]
     Route: 048
     Dates: start: 19951201, end: 19980501
  16. PREDNISONE [Concomitant]
     Indication: SYSTEMIC LUPUS ERYTHEMATOSUS
     Route: 065
     Dates: start: 19850101
  17. FOSAMAX [Suspect]
     Route: 048
     Dates: start: 19960101, end: 20050101
  18. FOSAMAX [Suspect]
     Indication: OSTEOPOROSIS
     Route: 048
     Dates: start: 20060101
  19. FOSAMAX [Suspect]
     Route: 048
     Dates: start: 19960101, end: 20050101
  20. [THERAPY UNSPECIFIED] [Concomitant]
     Indication: RHEUMATOID ARTHRITIS
     Route: 065
  21. CHOLECALCIFEROL [Concomitant]
     Route: 065
     Dates: start: 20100101
  22. PRILOSEC [Concomitant]
     Route: 065
     Dates: start: 19980506

REACTIONS (12)
  - ANXIETY [None]
  - CARDIAC DISORDER [None]
  - ASTHMA [None]
  - IMPAIRED HEALING [None]
  - FEMUR FRACTURE [None]
  - NERVOUSNESS [None]
  - DIABETES MELLITUS [None]
  - DEPRESSION POSTOPERATIVE [None]
  - GASTROOESOPHAGEAL REFLUX DISEASE [None]
  - PNEUMONIA [None]
  - HYPERTENSION [None]
  - BLOOD CHOLESTEROL INCREASED [None]
